FAERS Safety Report 8135985-3 (Version None)
Quarter: 2012Q1

REPORT INFORMATION
  Report Type: 
  Country: None (occurrence: None)
  Receive Date: 20120209
  Receipt Date: 20120206
  Transmission Date: 20120608
  Serious: Yes (Life-Threatening, Hospitalization)
  Sender: FDA-Public Use
  Company Number: 2009SP023478

PATIENT
  Age: 34 Year
  Sex: Female
  Weight: 85.2762 kg

DRUGS (4)
  1. NEXIUM [Concomitant]
  2. NUVARING [Suspect]
     Dates: start: 20070801, end: 20071101
  3. NUVARING [Suspect]
     Dates: start: 20060801, end: 20061118
  4. PAXIL [Concomitant]

REACTIONS (18)
  - PROTEIN C DEFICIENCY [None]
  - BLOOD PRESSURE SYSTOLIC INCREASED [None]
  - PULMONARY INFARCTION [None]
  - HYPERCOAGULATION [None]
  - PULMONARY EMBOLISM [None]
  - MENTAL DISORDER [None]
  - MUSCULOSKELETAL CHEST PAIN [None]
  - COGNITIVE DISORDER [None]
  - EMOTIONAL DISORDER [None]
  - MENORRHAGIA [None]
  - ROAD TRAFFIC ACCIDENT [None]
  - INTRACARDIAC THROMBUS [None]
  - HEADACHE [None]
  - NECK PAIN [None]
  - PROTEIN S DEFICIENCY [None]
  - PELVIC VENOUS THROMBOSIS [None]
  - BACK INJURY [None]
  - SPINAL OSTEOARTHRITIS [None]
